FAERS Safety Report 6232533-X (Version None)
Quarter: 2009Q2

REPORT INFORMATION
  Report Type: 
  Country: None (occurrence: None)
  Receive Date: 20090617
  Receipt Date: 20090603
  Transmission Date: 20091009
  Serious: Yes (Other)
  Sender: FDA-Public Use
  Company Number: FR-RANBAXY-2009RR-24648

PATIENT
  Age: 57 Year
  Sex: Female

DRUGS (16)
  1. CETIRIZINE [Suspect]
     Dosage: 10 MG, UNK
  2. FEXOFENADINE [Suspect]
     Dosage: 120 MG, UNK
  3. LORATADINE [Suspect]
     Dosage: 10 MG, UNK
  4. MEQUITAZINE [Suspect]
     Dosage: 10 MG, UNK
  5. HYDROXYZINE [Suspect]
     Dosage: 50 MG, UNK
  6. HYDROXYZINE [Suspect]
     Dosage: 100 MG, QD
  7. DEXCHLORPHENIRAMINE [Suspect]
     Dosage: 2 MG, UNK
  8. BETHAMETASONE [Suspect]
     Dosage: 0.25 MG, UNK
  9. METHYLPREDNISOLONE [Suspect]
     Dosage: 60 MG, UNK
  10. TRIPROLIDINE [Suspect]
  11. CODEINE PHOSPHATE [Suspect]
     Indication: SKIN TEST POSITIVE
  12. HISTAMINE PHOSPHATE [Suspect]
     Indication: SKIN TEST POSITIVE
     Dosage: 10 UNK, UNK
  13. TOLUENE DIAMINE [Suspect]
     Indication: SKIN TEST POSITIVE
  14. METHYLPREDNISOLONE [Concomitant]
  15. MIZOLASTINE [Concomitant]
  16. CIMETIDINE [Concomitant]

REACTIONS (1)
  - URTICARIA [None]
